FAERS Safety Report 12774404 (Version 1)
Quarter: 2016Q3

REPORT INFORMATION
  Report Type: Spontaneous
  Country: US (occurrence: US)
  Receive Date: 20160920
  Receipt Date: 20160920
  Transmission Date: 20161109
  Serious: Yes (Hospitalization)
  Sender: FDA-Public Use
  Company Number: None

PATIENT
  Age: 58 Year
  Sex: Male
  Weight: 72.4 kg

DRUGS (13)
  1. LACTULOSE. [Concomitant]
     Active Substance: LACTULOSE
  2. VANCOMYCIN [Concomitant]
     Active Substance: VANCOMYCIN
  3. SOFOSBUVIR 400MG GILEAD [Suspect]
     Active Substance: SOFOSBUVIR
     Indication: HEPATITIS C
     Route: 048
     Dates: start: 20160510
  4. INSULIN [Concomitant]
     Active Substance: INSULIN NOS
  5. RIFAXIMIN [Concomitant]
     Active Substance: RIFAXIMIN
  6. CEFTRIAXONE. [Concomitant]
     Active Substance: CEFTRIAXONE
  7. PROTONIX [Concomitant]
     Active Substance: PANTOPRAZOLE SODIUM
  8. KEFLEX [Concomitant]
     Active Substance: CEPHALEXIN
  9. SPIRONOLACTONE. [Concomitant]
     Active Substance: SPIRONOLACTONE
  10. BACTRIM [Concomitant]
     Active Substance: SULFAMETHOXAZOLE\TRIMETHOPRIM
  11. LASIX [Concomitant]
     Active Substance: FUROSEMIDE
  12. RIBAVIRIN 600 MG [Suspect]
     Active Substance: RIBAVIRIN
     Indication: HEPATITIS C
     Route: 048
     Dates: start: 20160510
  13. ZINX [Concomitant]

REACTIONS (2)
  - Bursitis [None]
  - Fall [None]

NARRATIVE: CASE EVENT DATE: 20160529
